FAERS Safety Report 10347992 (Version 2)
Quarter: 2014Q3

REPORT INFORMATION
  Report Type: Report from Study
  Country: US (occurrence: US)
  Receive Date: 20140729
  Receipt Date: 20140729
  Transmission Date: 20150326
  Serious: Yes (Hospitalization, Other)
  Sender: FDA-Public Use
  Company Number: US-BAYER-2014-102841

PATIENT
  Age: 86 Year
  Sex: Male
  Weight: 77.1 kg

DRUGS (18)
  1. CITALOPRAM [Concomitant]
     Active Substance: CITALOPRAM HYDROBROMIDE
  2. GLIPIZIDE. [Concomitant]
     Active Substance: GLIPIZIDE
  3. SIMVASTATIN. [Concomitant]
     Active Substance: SIMVASTATIN
  4. LOMOTIL [DIPHENOXYLATE HYDROCHLORIDE] [Concomitant]
  5. NEXAVAR [Suspect]
     Active Substance: SORAFENIB
     Indication: HEPATIC CANCER
     Dosage: 400 MG, BID
     Route: 048
     Dates: start: 20140702, end: 20140716
  6. METOPROLOL [Concomitant]
     Active Substance: METOPROLOL
  7. TAMSULOSIN [Concomitant]
     Active Substance: TAMSULOSIN
  8. NEXAVAR [Suspect]
     Active Substance: SORAFENIB
     Indication: HEPATIC CANCER
     Dosage: 400 MG, BID
     Route: 048
     Dates: start: 20140628
  9. GABAPENTIN. [Concomitant]
     Active Substance: GABAPENTIN
  10. ONDANSETRON [Concomitant]
     Active Substance: ONDANSETRON
  11. RANITIDINE [Concomitant]
     Active Substance: RANITIDINE\RANITIDINE HYDROCHLORIDE
  12. OXYCODONE [Concomitant]
     Active Substance: OXYCODONE
  13. PROCHLORPERAZINE. [Concomitant]
     Active Substance: PROCHLORPERAZINE
  14. FINASTERIDE. [Concomitant]
     Active Substance: FINASTERIDE
  15. MORPHINE [Concomitant]
     Active Substance: MORPHINE
     Dosage: UNKNOWN
  16. HYDROCHLOROTHIAZIDE. [Concomitant]
     Active Substance: HYDROCHLOROTHIAZIDE
  17. LANTUS [Concomitant]
     Active Substance: INSULIN GLARGINE
  18. TOPIRAMATE. [Concomitant]
     Active Substance: TOPIRAMATE

REACTIONS (10)
  - Fluid intake reduced [None]
  - Decreased appetite [Unknown]
  - Hallucination [Recovered/Resolved]
  - Drug dose omission [Recovered/Resolved]
  - Asthenia [Unknown]
  - Diarrhoea [Unknown]
  - Diarrhoea [Recovered/Resolved]
  - Weight decreased [Unknown]
  - Dehydration [Recovered/Resolved]
  - Asthenia [Recovered/Resolved]

NARRATIVE: CASE EVENT DATE: 20140701
